FAERS Safety Report 6555478-4 (Version None)
Quarter: 2010Q1

REPORT INFORMATION
  Report Type: 
  Country: None (occurrence: None)
  Receive Date: 20100128
  Receipt Date: 20100125
  Transmission Date: 20100710
  Serious: Yes (Life-Threatening)
  Sender: FDA-Public Use
  Company Number: FR-ASTRAZENECA-2010SE03159

PATIENT
  Age: 14792 Day
  Sex: Female

DRUGS (7)
  1. DIPRIVAN [Suspect]
     Route: 042
     Dates: start: 20090402, end: 20090402
  2. SUFENTA [Suspect]
     Route: 042
     Dates: start: 20090402, end: 20090402
  3. HYPNOVEL [Suspect]
     Route: 042
     Dates: start: 20090402, end: 20090402
  4. CEFAZOLIN [Suspect]
     Route: 042
     Dates: start: 20090402, end: 20090402
  5. PERFALGAN [Suspect]
     Route: 042
     Dates: start: 20090402, end: 20090402
  6. ACUPAN [Suspect]
     Route: 042
     Dates: start: 20090402, end: 20090402
  7. ZOPHREN [Suspect]
     Route: 042
     Dates: start: 20090402, end: 20090402

REACTIONS (3)
  - ANAPHYLACTIC REACTION [None]
  - BRONCHOSPASM [None]
  - SKIN TEST NEGATIVE [None]
